FAERS Safety Report 11176556 (Version 1)
Quarter: 2015Q2

REPORT INFORMATION
  Report Type: Spontaneous
  Country: US (occurrence: None)
  Receive Date: 20150608
  Receipt Date: 20150608
  Transmission Date: 20150821
  Serious: Yes (Death, Other)
  Sender: FDA-Public Use
  Company Number: ADR-2015-01088

PATIENT
  Age: 64 Year
  Sex: Female

DRUGS (10)
  1. BACLOFEN. [Suspect]
     Active Substance: BACLOFEN
  2. CARISOPRODOL. [Suspect]
     Active Substance: CARISOPRODOL
  3. ONDANSETRON [Suspect]
     Active Substance: ONDANSETRON
  4. TRAZODONE [Suspect]
     Active Substance: TRAZODONE HYDROCHLORIDE
  5. OXYCODONE [Suspect]
     Active Substance: OXYCODONE
  6. ATORVASTATIN [Suspect]
     Active Substance: ATORVASTATIN
  7. LORAZEPAM. [Suspect]
     Active Substance: LORAZEPAM
  8. FENTANYL. [Suspect]
     Active Substance: FENTANYL
  9. OXYMORPHONE [Suspect]
     Active Substance: OXYMORPHONE
  10. MEPROBRAMATE [Suspect]
     Active Substance: MEPROBAMATE

REACTIONS (8)
  - Arteriosclerosis coronary artery [None]
  - Lethargy [None]
  - Toxicity to various agents [None]
  - Unresponsive to stimuli [None]
  - Pulmonary oedema [None]
  - Abdominal operation [None]
  - Depressed level of consciousness [None]
  - Hyperadrenocorticism [None]

NARRATIVE: CASE EVENT DATE: 20150417
